FAERS Safety Report 9676809 (Version 1)
Quarter: 2013Q4

REPORT INFORMATION
  Report Type: Spontaneous
  Country: US (occurrence: US)
  Receive Date: 20131107
  Receipt Date: 20131107
  Transmission Date: 20140711
  Serious: No
  Sender: FDA-Public Use
  Company Number: US-BAXTER-2012BAX027366

PATIENT
  Sex: Female

DRUGS (2)
  1. DIANEAL PD2 [Suspect]
     Indication: PERITONEAL DIALYSIS
     Route: 033
     Dates: end: 20121214
  2. DIANEAL PD2 (ULTRABAG) [Suspect]
     Indication: PERITONEAL DIALYSIS
     Dosage: 1.5- 1.7 L
     Route: 033

REACTIONS (4)
  - Bloody peritoneal effluent [Recovered/Resolved]
  - Peritoneal disorder [Recovered/Resolved]
  - Discomfort [Unknown]
  - Procedural pain [Unknown]
